FAERS Safety Report 5374450-3 (Version None)
Quarter: 2007Q2

REPORT INFORMATION
  Report Type: 
  Country: None (occurrence: None)
  Receive Date: 20070629
  Receipt Date: 20070621
  Transmission Date: 20071010
  Serious: Yes (Other)
  Sender: FDA-Public Use
  Company Number: JP-JNJFOC-20070605170

PATIENT
  Sex: Male

DRUGS (5)
  1. DUROTEP [Suspect]
     Route: 062
  2. DUROTEP [Suspect]
     Route: 062
  3. DUROTEP [Suspect]
     Indication: CANCER PAIN
     Route: 062
  4. NOVAMIN [Concomitant]
     Route: 065
  5. PRIMPERAN INJ [Concomitant]
     Route: 065

REACTIONS (3)
  - CONVULSION [None]
  - MUSCLE SPASMS [None]
  - RENAL IMPAIRMENT [None]
